FAERS Safety Report 20506741 (Version 2)
Quarter: 2022Q1

REPORT INFORMATION
  Report Type: Report from Study
  Country: NL (occurrence: NL)
  Receive Date: 20220223
  Receipt Date: 20220301
  Transmission Date: 20220423
  Serious: Yes (Hospitalization)
  Sender: FDA-Public Use
  Company Number: NL-KOREA IPSEN Pharma-2022-04335

PATIENT
  Age: 82 Year
  Sex: Female

DRUGS (1)
  1. LANREOTIDE ACETATE [Suspect]
     Active Substance: LANREOTIDE ACETATE
     Indication: Acromegaly
     Dosage: 120 MG EVERY 04 WEEKS
     Route: 058
     Dates: start: 20131127

REACTIONS (4)
  - Fall [Unknown]
  - Lower limb fracture [Recovering/Resolving]
  - Myocardial infarction [Unknown]
  - Neoplasm [Unknown]

NARRATIVE: CASE EVENT DATE: 20220212
